FAERS Safety Report 19945393 (Version 3)
Quarter: 2023Q2

REPORT INFORMATION
  Report Type: Spontaneous
  Country: US (occurrence: US)
  Receive Date: 20211012
  Receipt Date: 20230413
  Transmission Date: 20230721
  Serious: Yes (Disabling, Other)
  Sender: FDA-Public Use
  Company Number: US-ORGANON-O2110USA000827

PATIENT
  Sex: Female

DRUGS (1)
  1. SINGULAIR [Suspect]
     Active Substance: MONTELUKAST SODIUM
     Dosage: UNK
     Route: 048
     Dates: start: 2011, end: 2012

REACTIONS (17)
  - Neuropsychiatric symptoms [Not Recovered/Not Resolved]
  - Confusional state [Not Recovered/Not Resolved]
  - Anxiety [Not Recovered/Not Resolved]
  - Somnambulism [Not Recovered/Not Resolved]
  - Hallucination [Not Recovered/Not Resolved]
  - Major depression [Recovering/Resolving]
  - Suicidal ideation [Unknown]
  - Suicidal behaviour [Unknown]
  - Feeling abnormal [Unknown]
  - Tremor [Unknown]
  - Nightmare [Unknown]
  - Agitation [Unknown]
  - Restlessness [Unknown]
  - Obsessive-compulsive disorder [Unknown]
  - Dysphemia [Unknown]
  - Tic [Unknown]
  - Panic attack [Unknown]

NARRATIVE: CASE EVENT DATE: 20110101
